FAERS Safety Report 8030882-6 (Version None)
Quarter: 2012Q1

REPORT INFORMATION
  Report Type: 
  Country: None (occurrence: None)
  Receive Date: 20120109
  Receipt Date: 20120106
  Transmission Date: 20120608
  Serious: Yes (Hospitalization)
  Sender: FDA-Public Use
  Company Number: JP-PFIZER INC-2011288709

PATIENT
  Age: 63 Year
  Sex: Male
  Weight: 58 kg

DRUGS (9)
  1. VARENICLINE TARTRATE [Suspect]
     Indication: SMOKING CESSATION THERAPY
     Dosage: 0.5 MG, 2X/DAY
     Route: 048
     Dates: start: 20111004, end: 20111007
  2. SPIRIVA [Suspect]
     Indication: EMPHYSEMA
     Dosage: 5 UG, 1X/DAY
     Route: 055
     Dates: start: 20111001, end: 20111114
  3. ASPIRIN [Concomitant]
     Indication: ANGINA PECTORIS
     Dosage: 100 MG, 1X/DAY
     Route: 048
     Dates: start: 20030715
  4. FAMOTIDINE [Concomitant]
     Indication: GASTRITIS
     Dosage: 20 MG, 2X/DAY
     Route: 048
     Dates: start: 20030715
  5. VARENICLINE TARTRATE [Suspect]
     Indication: NICOTINE DEPENDENCE
     Dosage: 0.5 MG, 1X/DAY
     Route: 048
     Dates: start: 20111001, end: 20111003
  6. VARENICLINE TARTRATE [Suspect]
     Dosage: 1 MG, 2X/DAY
     Route: 048
     Dates: start: 20111008, end: 20111114
  7. CRESTOR [Concomitant]
     Indication: HYPERCHOLESTEROLAEMIA
     Dosage: 2.5 MG, 1X/DAY
     Route: 048
     Dates: start: 20100415
  8. EQUA [Concomitant]
     Indication: DIABETES MELLITUS
     Dosage: 100 MG, 2X/DAY
     Route: 048
     Dates: start: 20110528
  9. HERBESSER ^TANABE^ [Concomitant]
     Indication: ANGINA PECTORIS
     Dosage: 60 MG, 2X/DAY
     Route: 048
     Dates: start: 20030715

REACTIONS (1)
  - ILEUS [None]
